FAERS Safety Report 5239238-2 (Version None)
Quarter: 2007Q1

REPORT INFORMATION
  Report Type: 
  Country: None (occurrence: None)
  Receive Date: 20061208
  Receipt Date: 20050707
  Transmission Date: 20070707
  Serious: Yes (Other)
  Sender: FDA-Public Use
  Company Number: 2005UW09057

PATIENT
  Age: 75 Year
  Sex: Female
  Weight: 62.142 kg

DRUGS (5)
  1. CRESTOR [Suspect]
     Indication: BLOOD CHOLESTEROL INCREASED
     Dosage: 10 MG PO
     Route: 048
  2. CARBAMAZEPINE [Concomitant]
  3. METOPROLOL SUCCINATE [Concomitant]
  4. PLAVIX [Concomitant]
  5. FOSAMAX [Concomitant]

REACTIONS (2)
  - ALOPECIA [None]
  - PRURITUS [None]
